FAERS Safety Report 13068948 (Version 1)
Quarter: 2016Q4

REPORT INFORMATION
  Report Type: Spontaneous
  Country: IT (occurrence: IT)
  Receive Date: 20161228
  Receipt Date: 20161228
  Transmission Date: 20170207
  Serious: Yes (Other)
  Sender: FDA-Public Use
  Company Number: IT-BRISTOL-MYERS SQUIBB COMPANY-BMS-2016-110626

PATIENT

DRUGS (1)
  1. NIVOLUMAB [Suspect]
     Active Substance: NIVOLUMAB
     Indication: LUNG NEOPLASM MALIGNANT
     Route: 065

REACTIONS (6)
  - Pneumonia [Unknown]
  - Metastases to central nervous system [Unknown]
  - Fatigue [Unknown]
  - Visual impairment [Unknown]
  - Autoimmune hepatitis [Unknown]
  - Endocrine disorder [Unknown]
